FAERS Safety Report 4771769-1 (Version None)
Quarter: 2005Q3

REPORT INFORMATION
  Report Type: 
  Country: None (occurrence: None)
  Receive Date: 20050916
  Receipt Date: 20050908
  Transmission Date: 20060218
  Serious: Yes (Other)
  Sender: FDA-Public Use
  Company Number: 2005UW13322

PATIENT
  Age: 50 Year
  Sex: Female

DRUGS (4)
  1. NEXIUM [Suspect]
     Indication: GASTROOESOPHAGEAL REFLUX DISEASE
     Route: 048
     Dates: start: 20050901
  2. TEGRETOL [Concomitant]
  3. DIAMOX [Concomitant]
  4. PHENOBARBITAL TAB [Concomitant]

REACTIONS (1)
  - CONVULSION [None]
